FAERS Safety Report 6370839-4 (Version None)
Quarter: 2009Q3

REPORT INFORMATION
  Report Type: 
  Country: None (occurrence: None)
  Receive Date: 20090923
  Receipt Date: 20070628
  Transmission Date: 20100115
  Serious: Yes (Other)
  Sender: FDA-Public Use
  Company Number: US-ASTRAZENECA-2006UW24577

PATIENT
  Age: 18863 Day
  Sex: Female
  Weight: 40.8 kg

DRUGS (16)
  1. SEROQUEL [Suspect]
     Indication: SCHIZOPHRENIA
     Dosage: 200 - 800 MG
     Route: 048
     Dates: start: 20020523
  2. SEROQUEL [Suspect]
     Indication: BIPOLAR DISORDER
     Dosage: 200 - 800 MG
     Route: 048
     Dates: start: 20020523
  3. SEROQUEL [Suspect]
     Indication: DEPRESSION
     Dosage: 200 - 800 MG
     Route: 048
     Dates: start: 20020523
  4. ZYPREXA [Suspect]
     Dates: start: 20020523
  5. GEODON [Concomitant]
  6. HALDOL [Concomitant]
  7. NAVANE [Concomitant]
  8. RISPERDAL [Concomitant]
  9. SOLIAN [Concomitant]
  10. STELAZINE [Concomitant]
  11. THORAZINE [Concomitant]
  12. PERPHENAZINE [Concomitant]
  13. METFORMIN HCL [Concomitant]
     Dates: start: 20020710
  14. LIPITOR [Concomitant]
     Dates: start: 20020719
  15. DEPAKOTE [Concomitant]
     Dosage: 250 MG - 1500 MG
     Dates: start: 20020523
  16. LITHIUM CARBONATE [Concomitant]
     Dates: start: 20060429

REACTIONS (3)
  - DIABETES MELLITUS [None]
  - TARDIVE DYSKINESIA [None]
  - TYPE 2 DIABETES MELLITUS [None]
